FAERS Safety Report 12632120 (Version 2)
Quarter: 2016Q3

REPORT INFORMATION
  Report Type: Spontaneous
  Country: US (occurrence: US)
  Receive Date: 20160808
  Receipt Date: 20160808
  Transmission Date: 20161109
  Serious: No
  Sender: FDA-Public Use
  Company Number: US-BEH-2016061936

PATIENT
  Sex: Female
  Weight: 91 kg

DRUGS (19)
  1. HIZENTRA [Suspect]
     Active Substance: HUMAN IMMUNOGLOBULIN G
     Route: 058
  2. TOBRAMYCIN. [Concomitant]
     Active Substance: TOBRAMYCIN
  3. LOSARTAN. [Concomitant]
     Active Substance: LOSARTAN
  4. FISH OIL [Concomitant]
     Active Substance: FISH OIL
  5. SPIRONOLACTONE. [Concomitant]
     Active Substance: SPIRONOLACTONE
  6. NAPROXEN. [Concomitant]
     Active Substance: NAPROXEN
  7. TOPROL XL [Concomitant]
     Active Substance: METOPROLOL SUCCINATE
  8. TRAMADOL. [Concomitant]
     Active Substance: TRAMADOL
  9. DIPHENHYDRAMINE. [Concomitant]
     Active Substance: DIPHENHYDRAMINE
  10. HIZENTRA [Suspect]
     Active Substance: HUMAN IMMUNOGLOBULIN G
     Route: 058
     Dates: start: 20151229
  11. LIPITOR [Concomitant]
     Active Substance: ATORVASTATIN CALCIUM
  12. EPIPEN [Concomitant]
     Active Substance: EPINEPHRINE
  13. NORVASC [Concomitant]
     Active Substance: AMLODIPINE BESYLATE
  14. ASPIRIN. [Concomitant]
     Active Substance: ASPIRIN
  15. HIZENTRA [Suspect]
     Active Substance: HUMAN IMMUNOGLOBULIN G
     Indication: HYPOGAMMAGLOBULINAEMIA
     Route: 058
  16. GARLIC. [Concomitant]
     Active Substance: GARLIC
  17. CALCIUM [Concomitant]
     Active Substance: CALCIUM
  18. MULTIVITAMIN [Concomitant]
     Active Substance: VITAMINS
  19. ACETAMINOPHEN. [Concomitant]
     Active Substance: ACETAMINOPHEN

REACTIONS (1)
  - Oedema [Unknown]
